FAERS Safety Report 10416332 (Version 1)
Quarter: 2014Q3

REPORT INFORMATION
  Report Type: Spontaneous
  Country: US (occurrence: US)
  Receive Date: 20140828
  Receipt Date: 20140828
  Transmission Date: 20150326
  Serious: Yes (Hospitalization)
  Sender: FDA-Public Use
  Company Number: US-GLAXOSMITHKLINE-A1086567A

PATIENT
  Age: 23 Year
  Sex: Male

DRUGS (3)
  1. BENLYSTA [Suspect]
     Active Substance: BELIMUMAB
     Indication: SYSTEMIC LUPUS ERYTHEMATOSUS
     Dosage: 10MGK EVERY 28 DAYS
     Route: 042
     Dates: start: 201308, end: 201407
  2. METHYLPREDNISONE [Concomitant]
     Active Substance: METHYLPREDNISOLONE
  3. CELLCEPT [Concomitant]
     Active Substance: MYCOPHENOLATE MOFETIL\MYCOPHENOLATE MOFETIL HYDROCHLORIDE

REACTIONS (2)
  - Suicidal ideation [Unknown]
  - Systemic lupus erythematosus [Unknown]
